FAERS Safety Report 5269664-7 (Version None)
Quarter: 2007Q1

REPORT INFORMATION
  Report Type: 
  Country: None (occurrence: None)
  Receive Date: 20061218
  Receipt Date: 20061006
  Transmission Date: 20070707
  Serious: Yes (Hospitalization)
  Sender: FDA-Public Use
  Company Number: US200610001426

PATIENT
  Age: 18 Year
  Sex: Female

DRUGS (2)
  1. HUMALOG [Suspect]
     Indication: DIABETES MELLITUS
     Dates: end: 20020101
  2. HUMULIN N [Suspect]
     Indication: DIABETES MELLITUS
     Dates: end: 20020101

REACTIONS (4)
  - BLOOD GLUCOSE INCREASED [None]
  - DEPRESSED LEVEL OF CONSCIOUSNESS [None]
  - INFLUENZA [None]
  - KETOACIDOSIS [None]
